FAERS Safety Report 8099751-X (Version None)
Quarter: 2012Q1

REPORT INFORMATION
  Report Type: 
  Country: None (occurrence: None)
  Receive Date: 20120129
  Receipt Date: 20110916
  Transmission Date: 20120608
  Serious: No
  Sender: FDA-Public Use
  Company Number: US-ABBOTT-11P-163-0855520-00

PATIENT
  Sex: Female

DRUGS (3)
  1. DULCOLAX [Concomitant]
     Indication: CONSTIPATION PROPHYLAXIS
     Dosage: DAILY
  2. HUMIRA [Suspect]
     Indication: CROHN'S DISEASE
     Dosage: DAY 15
     Dates: start: 20110827
  3. MESALAMINE [Concomitant]
     Indication: GASTROINTESTINAL DISORDER

REACTIONS (2)
  - FATIGUE [None]
  - IMPAIRED HEALING [None]
